FAERS Safety Report 19807787 (Version 1)
Quarter: 2021Q3

REPORT INFORMATION
  Report Type: Spontaneous
  Country: IN (occurrence: IN)
  Receive Date: 20210908
  Receipt Date: 20210908
  Transmission Date: 20211014
  Serious: Yes (Other)
  Sender: FDA-Public Use
  Company Number: IN-ALLERGAN-2131309US

PATIENT
  Sex: Female

DRUGS (11)
  1. MINOCYCLINE [Suspect]
     Active Substance: MINOCYCLINE HYDROCHLORIDE
     Indication: ACINETOBACTER INFECTION
     Dosage: UNK
     Dates: start: 20210620
  2. MINOCYCLINE [Suspect]
     Active Substance: MINOCYCLINE HYDROCHLORIDE
     Indication: PNEUMONIA KLEBSIELLA
  3. AMPHOTERICIN B, LIPOSOME [Suspect]
     Active Substance: AMPHOTERICIN B
     Indication: PRODUCT USED FOR UNKNOWN INDICATION
     Dosage: 300 MG, QD
     Route: 042
     Dates: start: 20210608, end: 20210621
  4. CEFTRIAXONE SULBACTAM [Suspect]
     Active Substance: CEFTRIAXONE\SULBACTAM
     Indication: ACINETOBACTER INFECTION
     Dosage: UNK
     Dates: start: 20210620
  5. CEFTRIAXONE SULBACTAM [Suspect]
     Active Substance: CEFTRIAXONE\SULBACTAM
     Indication: PNEUMONIA KLEBSIELLA
  6. CRESEMBA [Suspect]
     Active Substance: ISAVUCONAZONIUM SULFATE
     Dosage: UNK
     Route: 048
  7. CEFTAZIDIME;AVIBACTAM ? BP [Suspect]
     Active Substance: AVIBACTAM SODIUM\CEFTAZIDIME
     Indication: PRODUCT USED FOR UNKNOWN INDICATION
     Dosage: UNK
  8. CRESEMBA [Suspect]
     Active Substance: ISAVUCONAZONIUM SULFATE
     Dosage: 200 MG, 3X/DAY (8 HOURLY FOR 48 HOURS)
     Route: 042
     Dates: start: 20210528, end: 20210529
  9. CRESEMBA [Suspect]
     Active Substance: ISAVUCONAZONIUM SULFATE
     Indication: MUCORMYCOSIS
     Dosage: UNK
     Route: 048
     Dates: start: 2021
  10. CRESEMBA [Suspect]
     Active Substance: ISAVUCONAZONIUM SULFATE
     Indication: MUCORMYCOSIS
     Dosage: 200 MG, QD
     Route: 042
     Dates: start: 20210530, end: 2021
  11. MEROPENEM. [Suspect]
     Active Substance: MEROPENEM
     Indication: PRODUCT USED FOR UNKNOWN INDICATION
     Dosage: UNK
     Dates: end: 2021

REACTIONS (9)
  - Obesity [Unknown]
  - Electrolyte imbalance [Unknown]
  - Diarrhoea [Unknown]
  - Thrombocytopenia [Unknown]
  - Mixed anxiety and depressive disorder [Unknown]
  - Acute kidney injury [Recovered/Resolved]
  - Vomiting [Unknown]
  - Sepsis [Unknown]
  - Hyponatraemia [Recovering/Resolving]

NARRATIVE: CASE EVENT DATE: 2021
